FAERS Safety Report 19505481 (Version 1)
Quarter: 2021Q3

REPORT INFORMATION
  Report Type: Spontaneous
  Country: US (occurrence: US)
  Receive Date: 20210707
  Receipt Date: 20210707
  Transmission Date: 20211014
  Serious: Yes (Other)
  Sender: FDA-Public Use
  Company Number: US-PURDUE-USA-2020-0156889

PATIENT
  Sex: Female
  Weight: 113 kg

DRUGS (8)
  1. VOLTAREN [Concomitant]
     Active Substance: DICLOFENAC SODIUM
     Indication: ARTHRALGIA
     Dosage: 1 GRAM, UNK, 10%
     Route: 062
  2. VOLTAREN [Concomitant]
     Active Substance: DICLOFENAC SODIUM
     Indication: ARTHRALGIA
  3. OXYCODONE/ ACETAMINOPHEN TABLETS [Suspect]
     Active Substance: ACETAMINOPHEN\OXYCODONE HYDROCHLORIDE
     Indication: ARTHRALGIA
     Dosage: 10?325 MG, Q8H PRN, ONE TAB
     Route: 048
  4. AMBIEN [Suspect]
     Active Substance: ZOLPIDEM TARTRATE
     Indication: PAIN
     Dosage: 10 MG, UNK, 1 TAB AT NIGHT
     Route: 048
  5. OXYCODONE/ ACETAMINOPHEN TABLETS [Suspect]
     Active Substance: ACETAMINOPHEN\OXYCODONE HYDROCHLORIDE
     Indication: PAIN
  6. ZALEPLON. [Concomitant]
     Active Substance: ZALEPLON
     Indication: ARTHRALGIA
     Dosage: 10 MG, EVERY HS
     Route: 048
  7. IBUPROFEN. [Concomitant]
     Active Substance: IBUPROFEN
     Indication: PAIN
     Dosage: 800 MG, TID PRN
     Route: 048
  8. OXYCODONE HYDROCHLORIDE (SIMILAR TO NDA 22?272) [Suspect]
     Active Substance: OXYCODONE HYDROCHLORIDE
     Indication: PRODUCT USED FOR UNKNOWN INDICATION
     Route: 048

REACTIONS (8)
  - Illness [Unknown]
  - Scoliosis [Unknown]
  - Arthralgia [Unknown]
  - Constipation [Unknown]
  - Limb injury [Unknown]
  - Drug dependence [Unknown]
  - Osteoarthritis [Unknown]
  - Back pain [Unknown]
